FAERS Safety Report 5458093-9 (Version None)
Quarter: 2007Q3

REPORT INFORMATION
  Report Type: 
  Country: None (occurrence: None)
  Receive Date: 20070919
  Receipt Date: 20070911
  Transmission Date: 20080115
  Serious: Yes (Hospitalization)
  Sender: FDA-Public Use
  Company Number: KR-JNJFOC-20070604229

PATIENT
  Sex: Female
  Weight: 76 kg

DRUGS (2)
  1. TRABECTEDIN (YONDELIS) [Suspect]
     Indication: OVARIAN CANCER
     Dosage: TOTAL DOSE
     Route: 042
  2. DOXORUBICIN HCL [Suspect]
     Indication: OVARIAN CANCER
     Route: 042
     Dates: start: 20070601, end: 20070601

REACTIONS (2)
  - NEUTROPENIA [None]
  - SEPTIC SHOCK [None]
